FAERS Safety Report 8394346-2 (Version None)
Quarter: 2012Q2

REPORT INFORMATION
  Report Type: 
  Country: None (occurrence: None)
  Receive Date: 20120530
  Receipt Date: 20120525
  Transmission Date: 20120825
  Serious: No
  Sender: FDA-Public Use
  Company Number: US-PFIZER INC-2012127278

PATIENT
  Sex: Male
  Weight: 113.4 kg

DRUGS (2)
  1. GEMFIBROZIL [Concomitant]
     Indication: BLOOD CHOLESTEROL INCREASED
     Dosage: 600 MG, 2X/DAY
  2. LYRICA [Suspect]
     Indication: FIBROMYALGIA
     Dosage: 75 MG, 2X/DAY
     Route: 048
     Dates: start: 20120509, end: 20120516

REACTIONS (2)
  - ACTIVITIES OF DAILY LIVING IMPAIRED [None]
  - PAIN IN EXTREMITY [None]
